FAERS Safety Report 13598602 (Version 1)
Quarter: 2017Q2

REPORT INFORMATION
  Report Type: Spontaneous
  Country: US (occurrence: US)
  Receive Date: 20170531
  Receipt Date: 20170531
  Transmission Date: 20170830
  Serious: No
  Sender: FDA-Public Use
  Company Number: None

PATIENT
  Age: 80 Year
  Sex: Male
  Weight: 94.2 kg

DRUGS (4)
  1. RITUXIMAB (MOAB C2B8 ANTI CD20, CHMIERIC) [Suspect]
     Active Substance: RITUXIMAB
     Dates: end: 20150803
  2. BENDAMUSTINE HYDROCHLORIDE. [Suspect]
     Active Substance: BENDAMUSTINE HYDROCHLORIDE
     Dates: end: 20131210
  3. VELCADE [Suspect]
     Active Substance: BORTEZOMIB
     Dates: end: 20131216
  4. LENALIDOMIDE (CC-5013) [Suspect]
     Active Substance: LENALIDOMIDE
     Dates: end: 20141017

REACTIONS (4)
  - Cytopenia [None]
  - Basal cell carcinoma [None]
  - Squamous cell carcinoma [None]
  - Actinic keratosis [None]

NARRATIVE: CASE EVENT DATE: 20160518
